FAERS Safety Report 4285456-X (Version None)
Quarter: 2004Q1

REPORT INFORMATION
  Report Type: 
  Country: None (occurrence: None)
  Receive Date: 20040202
  Receipt Date: 20040120
  Transmission Date: 20041129
  Serious: Yes (Other)
  Sender: FDA-Public Use
  Company Number: 2004196068JP

PATIENT
  Age: 61 Year
  Sex: Female

DRUGS (1)
  1. SOLU-MEDROL [Suspect]
     Indication: INTERSTITIAL LUNG DISEASE
     Dosage: 1 G, QD, IV  ; 500 MG, QD ;  250 MG QD
     Route: 042
     Dates: start: 20030926, end: 20030928

REACTIONS (2)
  - GASTRIC ULCER [None]
  - OESOPHAGEAL CANDIDIASIS [None]
